FAERS Safety Report 5694144-4 (Version None)
Quarter: 2008Q2

REPORT INFORMATION
  Report Type: 
  Country: None (occurrence: None)
  Receive Date: 20080402
  Receipt Date: 20080319
  Transmission Date: 20081010
  Serious: Yes (Other)
  Sender: FDA-Public Use
  Company Number: GP-08-03-0015

PATIENT
  Age: 2 Year
  Sex: Male
  Weight: 13.6079 kg

DRUGS (1)
  1. ONDANSETRON [Suspect]
     Indication: ACCIDENTAL EXPOSURE
     Dosage: 40 MG TOTAL, PO SINGLE DOSE
     Route: 048

REACTIONS (2)
  - ACCIDENTAL DRUG INTAKE BY CHILD [None]
  - COORDINATION ABNORMAL [None]
